FAERS Safety Report 6381910-5 (Version None)
Quarter: 2009Q3

REPORT INFORMATION
  Report Type: 
  Country: None (occurrence: None)
  Receive Date: 20090930
  Receipt Date: 20090923
  Transmission Date: 20100115
  Serious: Yes (Hospitalization)
  Sender: FDA-Public Use
  Company Number: US-RB-020925-09

PATIENT
  Age: 15 Year
  Sex: Female
  Weight: 60.75 kg

DRUGS (2)
  1. MUCINEX D [Suspect]
     Route: 048
  2. ZYRTEC [Concomitant]

REACTIONS (4)
  - CHEST PAIN [None]
  - DYSPNOEA [None]
  - HYPERSENSITIVITY [None]
  - VOMITING [None]
